FAERS Safety Report 7192337-0 (Version None)
Quarter: 2010Q4

REPORT INFORMATION
  Report Type: 
  Country: None (occurrence: None)
  Receive Date: 20101223
  Receipt Date: 20100823
  Transmission Date: 20110411
  Serious: No
  Sender: FDA-Public Use
  Company Number: US-AMGEN-KDL433184

PATIENT

DRUGS (5)
  1. ENBREL [Suspect]
     Indication: PRODUCT USED FOR UNKNOWN INDICATION
     Dosage: 50 MG, QWK
     Route: 058
  2. OXAPROZIN [Concomitant]
     Dosage: 600 MG, UNK
  3. PREDNISONE [Concomitant]
     Dosage: 1 MG, UNK
  4. VALSARTAN [Concomitant]
     Dosage: 40 MG, UNK
  5. POTASSIUM CITRATE [Concomitant]
     Dosage: UNK UNK, UNK

REACTIONS (1)
  - SKIN REACTION [None]
